FAERS Safety Report 15170756 (Version 3)
Quarter: 2018Q3

REPORT INFORMATION
  Report Type: Spontaneous
  Country: IT (occurrence: IT)
  Receive Date: 20180720
  Receipt Date: 20180913
  Transmission Date: 20181010
  Serious: Yes (Other)
  Sender: FDA-Public Use
  Company Number: IT-REGENERON PHARMACEUTICALS, INC.-2018-30236

PATIENT

DRUGS (3)
  1. EYLEA [Suspect]
     Active Substance: AFLIBERCEPT
     Dosage: LAST DOSE PRIOR TO EVENT ONSET, ONCE
     Route: 031
     Dates: start: 20180228, end: 20180228
  2. EYLEA [Suspect]
     Active Substance: AFLIBERCEPT
     Indication: PRODUCT USED FOR UNKNOWN INDICATION
     Dosage: PATIENT HAS ALREADY UNDERGONE 6 CYCLES OF EYLEA
     Route: 031
  3. NETILMICIN [Concomitant]
     Active Substance: NETILMICIN
     Indication: PRODUCT USED FOR UNKNOWN INDICATION

REACTIONS (2)
  - Corneal oedema [Unknown]
  - Corneal endotheliitis [Not Recovered/Not Resolved]

NARRATIVE: CASE EVENT DATE: 20180302
